FAERS Safety Report 18246140 (Version 1)
Quarter: 2020Q3

REPORT INFORMATION
  Report Type: Spontaneous
  Country: US (occurrence: US)
  Receive Date: 20200909
  Receipt Date: 20200909
  Transmission Date: 20201103
  Serious: No
  Sender: FDA-Public Use
  Company Number: US-TEVA-2020-US-1820889

PATIENT
  Sex: Female

DRUGS (1)
  1. AJOVY [Suspect]
     Active Substance: FREMANEZUMAB-VFRM
     Route: 058

REACTIONS (8)
  - Injection site reaction [Unknown]
  - Device delivery system issue [Unknown]
  - Liquid product physical issue [Unknown]
  - Syringe issue [Unknown]
  - Unevaluable device issue [Unknown]
  - Pain [Unknown]
  - Device difficult to use [Unknown]
  - Needle issue [Unknown]
